FAERS Safety Report 26134895 (Version 2)
Quarter: 2025Q4

REPORT INFORMATION
  Report Type: Spontaneous
  Country: US (occurrence: US)
  Receive Date: 20251209
  Receipt Date: 20251211
  Transmission Date: 20260118
  Serious: Yes (Life-Threatening, Hospitalization)
  Sender: BAYER HEALTHCARE LLC
  Company Number: US-BAYER-2025A162037

PATIENT
  Age: 50 Year
  Sex: Male

DRUGS (1)
  1. ASPIRIN [Suspect]
     Active Substance: ASPIRIN
     Indication: Arthralgia
     Dosage: PERIOD OF 3 TO 4 DAYS

REACTIONS (6)
  - Intentional overdose [Recovered/Resolved]
  - Metabolic acidosis [Recovered/Resolved]
  - Toxicity to various agents [Recovered/Resolved]
  - Respiratory alkalosis [Recovered/Resolved]
  - Intentional product misuse [Recovered/Resolved]
  - Sinus tachycardia [Recovered/Resolved]
